FAERS Safety Report 8532452-X (Version None)
Quarter: 2012Q3

REPORT INFORMATION
  Report Type: 
  Country: None (occurrence: None)
  Receive Date: 20120716
  Receipt Date: 20120716
  Transmission Date: 20120928
  Serious: Yes (Other)
  Sender: FDA-Public Use
  Company Number: None

PATIENT
  Age: 35 Year
  Sex: Female
  Weight: 58.9676 kg

DRUGS (1)
  1. CLINDAMYCIN [Suspect]
     Indication: INFECTION
     Dosage: 300MG 3 TIMES A DAY 3 DOSES
     Dates: start: 20120714, end: 20120715

REACTIONS (4)
  - VOMITING [None]
  - MUSCULOSKELETAL CHEST PAIN [None]
  - HYPERHIDROSIS [None]
  - CHEST PAIN [None]
